FAERS Safety Report 23000276 (Version 3)
Quarter: 2023Q4

REPORT INFORMATION
  Report Type: Spontaneous
  Country: US (occurrence: US)
  Receive Date: 20230928
  Receipt Date: 20231122
  Transmission Date: 20240110
  Serious: Yes (Disabling, Other)
  Sender: FDA-Public Use
  Company Number: US-REGENERON PHARMACEUTICALS, INC.-2023-107348

PATIENT
  Sex: Female

DRUGS (1)
  1. EYLEA [Suspect]
     Active Substance: AFLIBERCEPT
     Indication: Retinal vein occlusion
     Dosage: 2 MG, EVERY 6 WEEKS INTO LEFT EYE (FORMULATION: PFS GERRESHEIMER)
     Dates: start: 20211227, end: 20230925

REACTIONS (2)
  - Blindness unilateral [Not Recovered/Not Resolved]
  - Non-infectious endophthalmitis [Recovering/Resolving]

NARRATIVE: CASE EVENT DATE: 20230824
